FAERS Safety Report 6102419-X (Version None)
Quarter: 2009Q1

REPORT INFORMATION
  Report Type: 
  Country: None (occurrence: None)
  Receive Date: 20090304
  Receipt Date: 20090218
  Transmission Date: 20090719
  Serious: Yes (Hospitalization)
  Sender: FDA-Public Use
  Company Number: FR-ELI_LILLY_AND_COMPANY-FR200901001444

PATIENT
  Age: 74 Year
  Sex: Female

DRUGS (6)
  1. FORTEO [Suspect]
     Indication: OSTEOPOROTIC FRACTURE
     Dosage: 20 UG, UNKNOWN
     Route: 058
     Dates: start: 20080711
  2. APROVEL [Concomitant]
     Dosage: 300 MG, DAILY (1/D)
     Route: 065
  3. KARDEGIC /00002703/ [Concomitant]
     Dosage: 75 MG, DAILY (1/D)
     Route: 065
  4. TAHOR [Concomitant]
     Dosage: 20 MG, DAILY (1/D)
     Route: 065
  5. FORADIL [Concomitant]
     Dosage: 12 MG, DAILY (1/D)
     Route: 065
  6. MIFLONIL [Concomitant]
     Dosage: 400 MG, DAILY (1/D)
     Route: 065

REACTIONS (1)
  - ARTERITIS [None]
